FAERS Safety Report 11644044 (Version 1)
Quarter: 2015Q4

REPORT INFORMATION
  Report Type: Spontaneous
  Country: US (occurrence: US)
  Receive Date: 20151020
  Receipt Date: 20151020
  Transmission Date: 20160304
  Serious: No
  Sender: FDA-Public Use
  Company Number: PHHY2015US130127

PATIENT
  Sex: Male

DRUGS (1)
  1. VOTRIENT [Suspect]
     Active Substance: PAZOPANIB HYDROCHLORIDE
     Indication: RENAL CELL CARCINOMA
     Dosage: 4 DF, QD (800 MG)
     Route: 048
     Dates: start: 20150223

REACTIONS (4)
  - Nausea [Not Recovered/Not Resolved]
  - Appetite disorder [Unknown]
  - Diarrhoea [Not Recovered/Not Resolved]
  - Weight fluctuation [Unknown]
